FAERS Safety Report 20825502 (Version 1)
Quarter: 2022Q2

REPORT INFORMATION
  Report Type: Spontaneous
  Country: US (occurrence: US)
  Receive Date: 20220513
  Receipt Date: 20220513
  Transmission Date: 20220721
  Serious: Yes (Other)
  Sender: FDA-Public Use
  Company Number: US-SUNOVION-2022SUN001509

PATIENT
  Sex: Male

DRUGS (2)
  1. LUNESTA [Suspect]
     Active Substance: ESZOPICLONE
     Dosage: ? OF 2MG TABLET
     Route: 048
     Dates: start: 201804
  2. LUNESTA [Suspect]
     Active Substance: ESZOPICLONE
     Dosage: ? OF 3MG TABLET
     Route: 048
     Dates: start: 201909

REACTIONS (3)
  - Neuropathy peripheral [Unknown]
  - Neuritis [Unknown]
  - Wrong technique in product usage process [Unknown]
